FAERS Safety Report 22888351 (Version 3)
Quarter: 2023Q4

REPORT INFORMATION
  Report Type: Spontaneous
  Country: US (occurrence: US)
  Receive Date: 20230831
  Receipt Date: 20231031
  Transmission Date: 20240109
  Serious: Yes (Hospitalization, Other)
  Sender: FDA-Public Use
  Company Number: US-PFIZER INC-202300287229

PATIENT
  Age: 15 Year
  Sex: Male

DRUGS (1)
  1. BENEFIX [Suspect]
     Active Substance: COAGULATION FACTOR IX RECOMBINANT HUMAN\ISOPROPYL ALCOHOL
     Dosage: 6100 UNITS (+5% )-100 UNITS/KG

REACTIONS (3)
  - Haemorrhage [Not Recovered/Not Resolved]
  - Injury [Unknown]
  - Haemorrhage [Unknown]
